FAERS Safety Report 22270451 (Version 1)
Quarter: 2023Q2

REPORT INFORMATION
  Report Type: Spontaneous
  Country: US (occurrence: None)
  Receive Date: 20230429
  Receipt Date: 20230429
  Transmission Date: 20230722
  Serious: Yes (unspecified)
  Sender: FDA-Public Use
  Company Number: None

PATIENT
  Age: 47 Year
  Sex: Female
  Weight: 63 kg

DRUGS (1)
  1. DYSPORT [Suspect]
     Active Substance: ABOBOTULINUMTOXINA
     Dates: start: 20221215, end: 20230316

REACTIONS (2)
  - Muscle contractions involuntary [None]
  - Muscle twitching [None]

NARRATIVE: CASE EVENT DATE: 20230428
